FAERS Safety Report 5656964-1 (Version None)
Quarter: 2008Q1

REPORT INFORMATION
  Report Type: 
  Country: None (occurrence: None)
  Receive Date: 20080310
  Receipt Date: 20080305
  Transmission Date: 20080703
  Serious: Yes (Hospitalization)
  Sender: FDA-Public Use
  Company Number: B0443748A

PATIENT
  Sex: Female

DRUGS (1)
  1. TOPOTECAN [Suspect]
     Indication: OVARIAN CANCER
     Dosage: 2.28MG PER DAY
     Route: 042
     Dates: start: 20061016

REACTIONS (4)
  - HYDRONEPHROSIS [None]
  - RENAL PAIN [None]
  - URINARY RETENTION [None]
  - VOMITING [None]
